FAERS Safety Report 4750398-X (Version None)
Quarter: 2005Q3

REPORT INFORMATION
  Report Type: 
  Country: None (occurrence: None)
  Receive Date: 20050818
  Receipt Date: 20050810
  Transmission Date: 20060218
  Serious: Yes (Other)
  Sender: FDA-Public Use
  Company Number: 2005-02937

PATIENT
  Age: 36 Year
  Sex: Female

DRUGS (7)
  1. HALOPERIDOL [Suspect]
     Indication: SCHIZOPHRENIA, PARANOID TYPE
     Dosage: 3-24 MG, TID, ORAL
     Route: 048
  2. CLONAZEPAM [Suspect]
     Indication: SCHIZOPHRENIA, PARANOID TYPE
     Dosage: 1-4.5MG, DAILY, ORAL
     Route: 048
  3. CLOCAPRAMINE (CLOCAPRAMINE) [Suspect]
     Indication: SCHIZOPHRENIA, PARANOID TYPE
     Dosage: 75 50 MG, DAILY, ORAL
     Route: 048
  4. ZOTEPINE (ZOTEPINE) [Suspect]
     Indication: SCHIZOPHRENIA, PARANOID TYPE
     Dosage: 50-200 MG, DAILY, ORAL
     Route: 048
  5. BROMPERIDOL (BROMPERIDOL) [Suspect]
     Indication: SCHIZOPHRENIA, PARANOID TYPE
     Dosage: 6-9MG, DAILY, ORAL
     Route: 048
  6. PEROSPIRONE (PEROSPIRONE) [Suspect]
     Indication: SCHIZOPHRENIA, PARANOID TYPE
     Dosage: 16-32 MG, DAILY, ORL
     Route: 048
  7. OLANZAPINE [Suspect]
     Indication: SCHIZOPHRENIA, PARANOID TYPE
     Dosage: 10 M, DAILY, ORAL
     Route: 048

REACTIONS (1)
  - ATRIAL THROMBOSIS [None]
